FAERS Safety Report 5243273-8 (Version None)
Quarter: 2007Q1

REPORT INFORMATION
  Report Type: 
  Country: None (occurrence: None)
  Receive Date: 20070215
  Receipt Date: 20070202
  Transmission Date: 20070707
  Serious: Yes (Death, Hospitalization, Other)
  Sender: FDA-Public Use
  Company Number: 07CZ000863

PATIENT
  Age: 53 Year
  Sex: Male

DRUGS (1)
  1. LITHIUM CARBONATE [Suspect]
     Indication: DRUG USE FOR UNKNOWN INDICATION

REACTIONS (8)
  - COMA [None]
  - DRUG TOXICITY [None]
  - HAEMODIALYSIS [None]
  - METABOLIC DISORDER [None]
  - PNEUMONIA [None]
  - RENAL FAILURE ACUTE [None]
  - SOMNOLENCE [None]
  - TACHYCARDIA [None]
